FAERS Safety Report 17763508 (Version 1)
Quarter: 2020Q2

REPORT INFORMATION
  Report Type: Spontaneous
  Country: US (occurrence: US)
  Receive Date: 20200509
  Receipt Date: 20200509
  Transmission Date: 20200714
  Serious: No
  Sender: FDA-Public Use
  Company Number: US-TEVA-2020-US-1233455

PATIENT
  Sex: Female

DRUGS (1)
  1. ESCITALOPRAM TEVA [Suspect]
     Active Substance: ESCITALOPRAM OXALATE
     Route: 065
     Dates: start: 20200110

REACTIONS (5)
  - Anger [Unknown]
  - Night sweats [Unknown]
  - Diarrhoea [Unknown]
  - Panic attack [Unknown]
  - Depressed mood [Unknown]
